FAERS Safety Report 18752201 (Version 2)
Quarter: 2021Q2

REPORT INFORMATION
  Report Type: Spontaneous
  Country: US (occurrence: US)
  Receive Date: 20210118
  Receipt Date: 20210402
  Transmission Date: 20210717
  Serious: No
  Sender: FDA-Public Use
  Company Number: US-FOUNDATIONCONSUMERHC-2020-US-021551

PATIENT
  Age: 18 Year
  Sex: Female
  Weight: 95.26 kg

DRUGS (2)
  1. AMOXACILLIAN/CLAVULANATE [Concomitant]
     Dates: end: 20201018
  2. PLAN B ONE?STEP [Suspect]
     Active Substance: LEVONORGESTREL
     Indication: POST COITAL CONTRACEPTION
     Dosage: 1 TABLET X1 DOSE
     Route: 048
     Dates: start: 20201019, end: 20201019

REACTIONS (1)
  - Menstruation delayed [Not Recovered/Not Resolved]

NARRATIVE: CASE EVENT DATE: 20201019
